FAERS Safety Report 5075144-4 (Version None)
Quarter: 2006Q3

REPORT INFORMATION
  Report Type: 
  Country: None (occurrence: None)
  Receive Date: 20060809
  Receipt Date: 20060712
  Transmission Date: 20061208
  Serious: Yes (Other)
  Sender: FDA-Public Use
  Company Number: PHRM2006FR02111

PATIENT
  Age: 2 Year
  Sex: Male

DRUGS (1)
  1. ZADITEN [Suspect]
     Indication: FOOD ALLERGY
     Dosage: 1 MG, QD
     Route: 048
     Dates: start: 20060620, end: 20060622

REACTIONS (2)
  - PALATAL OEDEMA [None]
  - PYREXIA [None]
